FAERS Safety Report 7783141-0 (Version None)
Quarter: 2011Q3

REPORT INFORMATION
  Report Type: 
  Country: None (occurrence: None)
  Receive Date: 20110928
  Receipt Date: 20110915
  Transmission Date: 20111222
  Serious: Yes (Other)
  Sender: FDA-Public Use
  Company Number: PHHY2011BR82363

PATIENT
  Sex: Female

DRUGS (3)
  1. DIOVAN [Suspect]
     Indication: HYPERTENSION
     Dosage: 160 MG, DAILY
     Route: 048
  2. CILOSTAZOL [Concomitant]
     Indication: POOR PERIPHERAL CIRCULATION
     Dosage: 100 MG, 2 TABLETS A DAY
     Route: 048
  3. VYTORIN [Concomitant]
     Indication: BLOOD CHOLESTEROL
     Dosage: 1 DF (10/40 MG), DAILY
     Route: 048

REACTIONS (4)
  - NASAL DISCOMFORT [None]
  - CATARACT [None]
  - PRURITUS [None]
  - EYE PRURITUS [None]
